FAERS Safety Report 15785330 (Version 1)
Quarter: 2018Q4

REPORT INFORMATION
  Report Type: Spontaneous
  Country: US (occurrence: US)
  Receive Date: 20181228
  Receipt Date: 20181228
  Transmission Date: 20190205
  Serious: No
  Sender: FDA-Public Use
  Company Number: None

PATIENT
  Sex: Male

DRUGS (2)
  1. LAMICTAL [Suspect]
     Active Substance: LAMOTRIGINE
  2. LAMISIL [Suspect]
     Active Substance: TERBINAFINE HYDROCHLORIDE

REACTIONS (8)
  - Vision blurred [None]
  - Product appearance confusion [None]
  - Headache [None]
  - Wrong product administered [None]
  - Dizziness [None]
  - Macular hole [None]
  - Product name confusion [None]
  - Product dispensing error [None]

NARRATIVE: CASE EVENT DATE: 2018
